FAERS Safety Report 8110387-4 (Version None)
Quarter: 2012Q1

REPORT INFORMATION
  Report Type: 
  Country: None (occurrence: None)
  Receive Date: 20120202
  Receipt Date: 20120125
  Transmission Date: 20120608
  Serious: Yes (Hospitalization, Other)
  Sender: FDA-Public Use
  Company Number: US-BAXTER-2012BH001328

PATIENT
  Sex: Male

DRUGS (1)
  1. DIANEAL [Suspect]
     Indication: PERITONEAL DIALYSIS
     Route: 033

REACTIONS (6)
  - ARRHYTHMIA [None]
  - CATHETER SITE INFECTION [None]
  - CARDIAC VENTRICULAR DISORDER [None]
  - GANGRENE [None]
  - SKIN ULCER [None]
  - INFECTIOUS PERITONITIS [None]
